FAERS Safety Report 8409811-9 (Version None)
Quarter: 2012Q2

REPORT INFORMATION
  Report Type: 
  Country: None (occurrence: None)
  Receive Date: 20120605
  Receipt Date: 20120530
  Transmission Date: 20120825
  Serious: No
  Sender: FDA-Public Use
  Company Number: US-PFIZER INC-2012114556

PATIENT
  Sex: Female
  Weight: 66 kg

DRUGS (6)
  1. SUTENT [Suspect]
     Indication: PANCREATIC CARCINOMA
     Dosage: 50 MG, UNK, 42 DAY CYCLE (28/14)
     Route: 048
     Dates: start: 20110307
  2. SUTENT [Suspect]
     Indication: NEUROENDOCRINE CARCINOMA
  3. HYDROCHLOROTHIAZIDE [Concomitant]
     Dosage: DAILY
  4. XANAX [Concomitant]
     Dosage: DAILY
  5. LISINOPRIL [Concomitant]
     Dosage: DAILY
  6. DILAUDID [Concomitant]
     Dosage: DAILY

REACTIONS (8)
  - YELLOW SKIN [None]
  - EYE DISORDER [None]
  - FATIGUE [None]
  - DIARRHOEA [None]
  - BLOOD CHOLESTEROL INCREASED [None]
  - BLOOD PRESSURE ABNORMAL [None]
  - STOMATITIS [None]
  - CONJUNCTIVITIS [None]
